FAERS Safety Report 7065803-6 (Version None)
Quarter: 2010Q4

REPORT INFORMATION
  Report Type: 
  Country: None (occurrence: None)
  Receive Date: 20101027
  Receipt Date: 20101019
  Transmission Date: 20110411
  Serious: Yes (Other)
  Sender: FDA-Public Use
  Company Number: US-ELI_LILLY_AND_COMPANY-US201010001574

PATIENT
  Sex: Female

DRUGS (2)
  1. BYETTA [Suspect]
     Indication: PRODUCT USED FOR UNKNOWN INDICATION
     Dosage: 5 UG, UNK
     Route: 058
  2. BYETTA [Suspect]
     Dosage: 10 UG, UNK
     Route: 058

REACTIONS (5)
  - ABDOMINAL PAIN [None]
  - GLYCOSYLATED HAEMOGLOBIN INCREASED [None]
  - INFECTION [None]
  - RENAL IMPAIRMENT [None]
  - URTICARIA [None]
